FAERS Safety Report 6744898-0 (Version None)
Quarter: 2010Q2

REPORT INFORMATION
  Report Type: 
  Country: None (occurrence: None)
  Receive Date: 20100527
  Receipt Date: 20100526
  Transmission Date: 20101027
  Serious: Yes (Hospitalization, Other)
  Sender: FDA-Public Use
  Company Number: DE-WYE-G05688110

PATIENT
  Sex: Female
  Weight: 63 kg

DRUGS (3)
  1. TREVILOR RETARD [Suspect]
     Indication: DEPRESSION
     Route: 048
     Dates: start: 20030101, end: 20100101
  2. TREVILOR RETARD [Suspect]
     Route: 048
     Dates: start: 20100101, end: 20100101
  3. GLUTAMATE SODIUM [Suspect]
     Dosage: CHINESE FOOD EATEN ON THE DAY PRIOR TO AKINETIC CRISIS
     Route: 048

REACTIONS (4)
  - AKINESIA [None]
  - DRUG WITHDRAWAL SYNDROME [None]
  - HYPERTONIA [None]
  - PARKINSONISM [None]
